FAERS Safety Report 24610095 (Version 4)
Quarter: 2025Q1

REPORT INFORMATION
  Report Type: Spontaneous
  Country: US (occurrence: US)
  Receive Date: 20241112
  Receipt Date: 20250317
  Transmission Date: 20250408
  Serious: No
  Sender: SANOFI AVENTIS
  Company Number: US-SA-2024SA324937

PATIENT
  Age: 73 Year
  Sex: Female

DRUGS (2)
  1. DUPIXENT [Suspect]
     Active Substance: DUPILUMAB
     Indication: Neurodermatitis
     Route: 058
     Dates: start: 20241017, end: 20241017
  2. DUPIXENT [Suspect]
     Active Substance: DUPILUMAB
     Dosage: 300 MG, QOW
     Route: 058
     Dates: start: 20241104

REACTIONS (4)
  - Scratch [Not Recovered/Not Resolved]
  - Skin disorder [Unknown]
  - Pruritus [Not Recovered/Not Resolved]
  - Neurodermatitis [Recovering/Resolving]

NARRATIVE: CASE EVENT DATE: 20250101
